FAERS Safety Report 21390773 (Version 1)
Quarter: 2022Q3

REPORT INFORMATION
  Report Type: Spontaneous
  Country: US (occurrence: None)
  Receive Date: 20220928
  Receipt Date: 20220928
  Transmission Date: 20221026
  Serious: Yes (Hospitalization)
  Sender: FDA-Public Use
  Company Number: None

PATIENT
  Sex: Male
  Weight: 7.4 kg

DRUGS (3)
  1. BUSULFAN [Suspect]
     Active Substance: BUSULFAN
     Dates: end: 20220902
  2. CYCLOPHOSPHAMIDE [Suspect]
     Active Substance: CYCLOPHOSPHAMIDE
     Dates: end: 20220910
  3. FLUDARABINE PHOSPHATE [Suspect]
     Active Substance: FLUDARABINE PHOSPHATE
     Dates: end: 20220904

REACTIONS (7)
  - Grunting [None]
  - Use of accessory respiratory muscles [None]
  - Abdominal pain [None]
  - Ascites [None]
  - Hepatomegaly [None]
  - Drug ineffective [None]
  - Venoocclusive liver disease [None]

NARRATIVE: CASE EVENT DATE: 20220914
